FAERS Safety Report 25553859 (Version 5)
Quarter: 2025Q4

REPORT INFORMATION
  Report Type: Spontaneous
  Country: JP (occurrence: JP)
  Receive Date: 20250715
  Receipt Date: 20251104
  Transmission Date: 20260118
  Serious: Yes (Death, Hospitalization, Other)
  Sender: BRISTOL-MYERS SQUIBB COMPANY
  Company Number: JP-TAIHO-2025-007193

PATIENT
  Age: 50 Year
  Sex: Female
  Weight: 67.8 kg

DRUGS (5)
  1. ABRAXANE [Suspect]
     Active Substance: PACLITAXEL
     Indication: Triple negative breast cancer
     Dosage: 3 CYCLES?DAILY DOSE: 400 MILLIGRAM(S)
     Route: 041
     Dates: start: 20250523, end: 20250704
  2. LEVETIRACETAM [Concomitant]
     Active Substance: LEVETIRACETAM
     Indication: Epilepsy
     Dosage: NI
     Route: 048
  3. LEVETIRACETAM [Concomitant]
     Active Substance: LEVETIRACETAM
     Dosage: NI
     Route: 041
  4. GLASTA [Concomitant]
     Indication: Product used for unknown indication
     Route: 041
     Dates: start: 20250523, end: 20250704
  5. DEXAMETHASONE SODIUM PHOSPHATE [Concomitant]
     Active Substance: DEXAMETHASONE SODIUM PHOSPHATE
     Indication: Product used for unknown indication
     Route: 041
     Dates: start: 20250523, end: 20250704

REACTIONS (4)
  - Disseminated intravascular coagulation [Fatal]
  - Septic shock [Fatal]
  - Decreased appetite [Unknown]
  - Pancytopenia [Unknown]

NARRATIVE: CASE EVENT DATE: 20250701
